FAERS Safety Report 23292197 (Version 1)
Quarter: 2023Q4

REPORT INFORMATION
  Report Type: Spontaneous
  Country: CN (occurrence: CN)
  Receive Date: 20231213
  Receipt Date: 20231213
  Transmission Date: 20240110
  Serious: Yes (Hospitalization, Other)
  Sender: FDA-Public Use
  Company Number: None

PATIENT
  Age: 48 Year
  Sex: Female
  Weight: 70 kg

DRUGS (4)
  1. CYCLOPHOSPHAMIDE [Suspect]
     Active Substance: CYCLOPHOSPHAMIDE
     Indication: Breast cancer female
     Dosage: 1000 MG, ONCE A DAY, DILUTED WITH 100 ML OF SODIUM CHLORIDE, FIRST ADJUVANT CHEMOTHERAPY
     Route: 041
     Dates: start: 20231114, end: 20231114
  2. SODIUM CHLORIDE [Suspect]
     Active Substance: SODIUM CHLORIDE
     Indication: Medication dilution
     Dosage: (0.9%, INJECTION), 100 ML, ONCE A DAY, USED TO DILUTE 1000 MG OF CYCLOPHOSPHAMIDE, FIRST ADJUVANT CH
     Route: 041
     Dates: start: 20231114, end: 20231114
  3. SODIUM CHLORIDE [Suspect]
     Active Substance: SODIUM CHLORIDE
     Dosage: 250 ML, ONCE A DAY, USED TO DILUTE 160 MG OF EPIRUBICIN HYDROCHLORIDE, FIRST ADJUVANT CHEMOTHERAPY
     Route: 041
     Dates: start: 20231114, end: 20231114
  4. EPIRUBICIN HYDROCHLORIDE [Suspect]
     Active Substance: EPIRUBICIN HYDROCHLORIDE
     Indication: Breast cancer female
     Dosage: 160 MG, ONCE A DAY, DILUTED WITH 250 ML OF SODIUM CHLORIDE, FIRST ADJUVANT CHEMOTHERAPY
     Route: 041
     Dates: start: 20231114, end: 20231114

REACTIONS (1)
  - Myelosuppression [Recovering/Resolving]

NARRATIVE: CASE EVENT DATE: 20231128
